FAERS Safety Report 9922428 (Version 1)
Quarter: 2014Q1

REPORT INFORMATION
  Report Type: Spontaneous
  Country: JP (occurrence: JP)
  Receive Date: 20140225
  Receipt Date: 20140225
  Transmission Date: 20141002
  Serious: Yes (Other)
  Sender: FDA-Public Use
  Company Number: CHPA2014JP002919

PATIENT
  Sex: Male

DRUGS (2)
  1. NICOTINELL TTS [Suspect]
     Indication: SMOKING CESSATION THERAPY
     Dosage: 52.5 MG, QD
     Route: 062
     Dates: start: 20140217
  2. NICOTINELL TTS [Suspect]
     Dosage: UNK
     Route: 062

REACTIONS (1)
  - Abdominal distension [Unknown]
